FAERS Safety Report 14808958 (Version 2)
Quarter: 2018Q2

REPORT INFORMATION
  Report Type: Spontaneous
  Country: US (occurrence: US)
  Receive Date: 20180425
  Receipt Date: 20180511
  Transmission Date: 20180711
  Serious: Yes (Hospitalization, Other)
  Sender: FDA-Public Use
  Company Number: US-ABBVIE-18P-163-2327284-00

PATIENT
  Age: 12 Year
  Sex: Male

DRUGS (7)
  1. LEVETIRACETAM. [Suspect]
     Active Substance: LEVETIRACETAM
     Indication: PARTIAL SEIZURES
     Route: 065
  2. OXCARBAZEPINE. [Suspect]
     Active Substance: OXCARBAZEPINE
     Indication: PARTIAL SEIZURES
     Route: 065
  3. TOPIRAMATE. [Concomitant]
     Active Substance: TOPIRAMATE
     Indication: PRODUCT USED FOR UNKNOWN INDICATION
  4. SERTRALINE [Suspect]
     Active Substance: SERTRALINE HYDROCHLORIDE
     Indication: ANXIETY
     Route: 065
  5. VALPROIC ACID. [Concomitant]
     Active Substance: VALPROIC ACID
     Indication: PRODUCT USED FOR UNKNOWN INDICATION
  6. VALPROATE SODIUM. [Suspect]
     Active Substance: VALPROATE SODIUM
     Indication: PARTIAL SEIZURES
     Route: 065
  7. SERTRALINE [Suspect]
     Active Substance: SERTRALINE HYDROCHLORIDE
     Indication: TRICHOTILLOMANIA

REACTIONS (14)
  - Hemiplegia [Not Recovered/Not Resolved]
  - Impulse-control disorder [Unknown]
  - Dysgraphia [Unknown]
  - Motor dysfunction [Unknown]
  - Altered visual depth perception [Unknown]
  - Fine motor skill dysfunction [Unknown]
  - Neurological symptom [Unknown]
  - Disturbance in attention [Unknown]
  - Cognitive disorder [Unknown]
  - Disorientation [Unknown]
  - Drug ineffective [Unknown]
  - Condition aggravated [Unknown]
  - Mood altered [Unknown]
  - Reading disorder [Unknown]
